FAERS Safety Report 5699603-6 (Version None)
Quarter: 2008Q2

REPORT INFORMATION
  Report Type: 
  Country: None (occurrence: None)
  Receive Date: 20080408
  Receipt Date: 20080408
  Transmission Date: 20081010
  Serious: Yes (Life-Threatening)
  Sender: FDA-Public Use
  Company Number: None

PATIENT
  Age: 56 Year
  Sex: Female
  Weight: 77.1115 kg

DRUGS (1)
  1. LEVOTHYROXINE  .05   UNKNOWN [Suspect]
     Indication: HYPOTHYROIDISM
     Dosage: 1 DAILY PO
     Route: 048
     Dates: start: 20041108, end: 20050210

REACTIONS (4)
  - DEPRESSION [None]
  - SUICIDAL IDEATION [None]
  - THERAPEUTIC RESPONSE UNEXPECTED WITH DRUG SUBSTITUTION [None]
  - WEIGHT INCREASED [None]
